FAERS Safety Report 21363109 (Version 1)
Quarter: 2022Q3

REPORT INFORMATION
  Report Type: Spontaneous
  Country: US (occurrence: None)
  Receive Date: 20220921
  Receipt Date: 20220921
  Transmission Date: 20221026
  Serious: No
  Sender: FDA-Public Use
  Company Number: None

PATIENT
  Age: 75 Year
  Sex: Male
  Weight: 81.65 kg

DRUGS (1)
  1. ERIVEDGE [Suspect]
     Active Substance: VISMODEGIB
     Indication: Basal cell carcinoma
     Dosage: FREQUENCY : DAILY;?
     Route: 048
     Dates: start: 20220202, end: 202207

REACTIONS (7)
  - Arthralgia [None]
  - Myalgia [None]
  - Dysgeusia [None]
  - Decreased appetite [None]
  - Weight decreased [None]
  - Alopecia [None]
  - Therapy interrupted [None]
